FAERS Safety Report 4424031-0 (Version None)
Quarter: 2004Q3

REPORT INFORMATION
  Report Type: 
  Country: None (occurrence: None)
  Receive Date: 20040805
  Receipt Date: 20040727
  Transmission Date: 20050211
  Serious: Yes (Hospitalization)
  Sender: FDA-Public Use
  Company Number: HQWYE474627JUL04

PATIENT
  Age: 59 Year
  Sex: Male

DRUGS (9)
  1. RAPAMUNE [Suspect]
     Indication: PROPHYLAXIS AGAINST TRANSPLANT REJECTION
     Dosage: 2 MG 1X PER 1 DAY, ORAL
     Route: 048
     Dates: start: 20040706
  2. CYCLOSPORINE [Concomitant]
  3. PREDNISONE [Concomitant]
  4. RANITIDINE [Concomitant]
  5. AAS (ACETYLSALICYLIC ACID) [Concomitant]
  6. BACTRIM [Concomitant]
  7. PROPRANOLOL [Concomitant]
  8. AMLODIPINE [Concomitant]
  9. NISTATIN (NYSTATIN) [Concomitant]

REACTIONS (5)
  - BLOOD CREATININE INCREASED [None]
  - HAEMATOCRIT DECREASED [None]
  - HAEMOGLOBIN DECREASED [None]
  - POST PROCEDURAL PAIN [None]
  - RENAL HAEMATOMA [None]
